FAERS Safety Report 9263040 (Version 5)
Quarter: 2013Q4

REPORT INFORMATION
  Report Type: Report from Study
  Country: CA (occurrence: CA)
  Receive Date: 20130430
  Receipt Date: 20131120
  Transmission Date: 20140711
  Serious: Yes (Hospitalization, Other)
  Sender: FDA-Public Use
  Company Number: CA-ROCHE-1219741

PATIENT
  Age: 60 Year
  Sex: Female
  Weight: 62.2 kg

DRUGS (9)
  1. AVASTIN [Suspect]
     Indication: OVARIAN CANCER
     Route: 042
     Dates: start: 201101, end: 201107
  2. AVASTIN [Suspect]
     Indication: BREAST CANCER
     Route: 042
     Dates: start: 20130516
  3. AVASTIN [Suspect]
     Route: 042
     Dates: start: 20130319, end: 20130422
  4. TEMSIROLIMUS [Suspect]
     Indication: BREAST CANCER
     Route: 042
     Dates: start: 201101, end: 201107
  5. ATENOLOL [Concomitant]
  6. NORVASC [Concomitant]
  7. CARBOPLATIN [Concomitant]
     Route: 065
  8. TAXOL [Concomitant]
     Route: 065
  9. VITAMIN C [Concomitant]

REACTIONS (8)
  - Intestinal obstruction [Recovered/Resolved]
  - Enterocutaneous fistula [Recovered/Resolved]
  - Ovarian cancer [Not Recovered/Not Resolved]
  - Malignant pleural effusion [Unknown]
  - Dyspnoea [Unknown]
  - Pulmonary oedema [Unknown]
  - Axillary pain [Unknown]
  - Neck pain [Unknown]
